FAERS Safety Report 7875805-5 (Version None)
Quarter: 2011Q4

REPORT INFORMATION
  Report Type: 
  Country: None (occurrence: None)
  Receive Date: 20111031
  Receipt Date: 20111017
  Transmission Date: 20120403
  Serious: Yes (Other)
  Sender: FDA-Public Use
  Company Number: PHEH2011US07146

PATIENT
  Sex: Female

DRUGS (3)
  1. ANGIOTENSIN RECEPTAR BLOCKERS [Concomitant]
     Dosage: UNK UKN, UNK
  2. TEKTURNA [Suspect]
     Dosage: UNK UKN, QD
  3. ACE INHIBITORS [Concomitant]
     Dosage: UNK UKN, UNK

REACTIONS (1)
  - RENAL DISORDER [None]
